FAERS Safety Report 4758582-6 (Version None)
Quarter: 2005Q3

REPORT INFORMATION
  Report Type: 
  Country: None (occurrence: None)
  Receive Date: 20050901
  Receipt Date: 20050822
  Transmission Date: 20060218
  Serious: Yes (Hospitalization)
  Sender: FDA-Public Use
  Company Number: US-JNJFOC-20050805217

PATIENT
  Sex: Female
  Weight: 70.31 kg

DRUGS (3)
  1. DURAGESIC-100 [Suspect]
     Route: 062
     Dates: start: 20031201, end: 20050820
  2. DURAGESIC-100 [Suspect]
     Route: 062
     Dates: start: 20031201, end: 20050820
  3. ACTIQ [Concomitant]
     Indication: PAIN
     Route: 048
     Dates: start: 20030101, end: 20040101

REACTIONS (4)
  - CONFUSIONAL STATE [None]
  - INAPPROPRIATE SCHEDULE OF DRUG ADMINISTRATION [None]
  - MOBILITY DECREASED [None]
  - STOMACH DISCOMFORT [None]
